FAERS Safety Report 5451732-8 (Version None)
Quarter: 2007Q3

REPORT INFORMATION
  Report Type: 
  Country: None (occurrence: None)
  Receive Date: 20070913
  Receipt Date: 20070903
  Transmission Date: 20080115
  Serious: Yes (Other)
  Sender: FDA-Public Use
  Company Number: TR-ABBOTT-07P-161-0378705-00

PATIENT
  Age: 62 Year
  Sex: Female
  Weight: 70 kg

DRUGS (2)
  1. KLACID I.V. [Suspect]
     Indication: LUNG INFECTION
     Route: 048
     Dates: start: 20070822, end: 20070822
  2. CEFTRIAXONE [Suspect]
     Indication: LUNG INFECTION
     Route: 042
     Dates: start: 20070822, end: 20070822

REACTIONS (5)
  - ANAPHYLACTIC REACTION [None]
  - DYSPNOEA [None]
  - INCORRECT ROUTE OF DRUG ADMINISTRATION [None]
  - LOSS OF CONSCIOUSNESS [None]
  - PAIN IN EXTREMITY [None]
